FAERS Safety Report 24361799 (Version 1)
Quarter: 2024Q3

REPORT INFORMATION
  Report Type: Spontaneous
  Country: US (occurrence: None)
  Receive Date: 20240924
  Receipt Date: 20240924
  Transmission Date: 20241017
  Serious: Yes (Hospitalization, Disabling)
  Sender: Public
  Company Number: None

PATIENT
  Age: 67 Year
  Sex: Female
  Weight: 48.99 kg

DRUGS (5)
  1. PROLIA [Suspect]
     Active Substance: DENOSUMAB
     Indication: Osteoporosis
     Dosage: OTHER FREQUENCY : EVERY 6 MONTHS ;?OTHER ROUTE : BY INJECTION ;?
     Route: 050
     Dates: start: 20180708, end: 20220510
  2. VITAMINS [Concomitant]
  3. PARAFFIN [Concomitant]
     Active Substance: PARAFFIN
  4. HERBRAL TEA [Concomitant]
  5. TAGAMET [Concomitant]
     Active Substance: CIMETIDINE

REACTIONS (5)
  - Pathological fracture [None]
  - Spinal fracture [None]
  - Thoracic vertebral fracture [None]
  - Lumbar vertebral fracture [None]
  - Multiple injuries [None]

NARRATIVE: CASE EVENT DATE: 20230725
